FAERS Safety Report 22171831 (Version 2)
Quarter: 2023Q2

REPORT INFORMATION
  Report Type: Spontaneous
  Country: US (occurrence: US)
  Receive Date: 20230404
  Receipt Date: 20230421
  Transmission Date: 20230721
  Serious: No
  Sender: FDA-Public Use
  Company Number: US-GALDERMA-US2023004303

PATIENT

DRUGS (18)
  1. PROACTIV MD ADAPALENE ACNE TREATMENT [Suspect]
     Active Substance: ADAPALENE
     Indication: Pruritus
     Dosage: 1 DOSAGE FORM, TIW, APPLIED Q-TIP
     Route: 061
     Dates: start: 202302, end: 2023
  2. PROACTIV MD ADAPALENE ACNE TREATMENT [Suspect]
     Active Substance: ADAPALENE
     Indication: Pain of skin
  3. PROACTIV MD ADAPALENE ACNE TREATMENT [Suspect]
     Active Substance: ADAPALENE
     Indication: Skin discolouration
  4. PROACTIV MD ADAPALENE ACNE TREATMENT [Suspect]
     Active Substance: ADAPALENE
     Indication: Skin swelling
  5. PROACTIV MD ADAPALENE ACNE TREATMENT [Suspect]
     Active Substance: ADAPALENE
     Indication: Rash papular
  6. Proactiv MD Ultra Hydrating Moisturizer [Concomitant]
     Indication: Pruritus
     Dosage: 1 DOSAGE FORM, BID, APPLIED LITTLE
     Route: 061
     Dates: start: 202302, end: 2023
  7. Proactiv MD Ultra Hydrating Moisturizer [Concomitant]
     Indication: Pain of skin
  8. Proactiv MD Ultra Hydrating Moisturizer [Concomitant]
     Indication: Skin discolouration
  9. Proactiv MD Ultra Hydrating Moisturizer [Concomitant]
     Indication: Skin swelling
  10. Proactiv MD Ultra Hydrating Moisturizer [Concomitant]
     Indication: Rash papular
  11. Proactiv MD Ultra Gentle Cleanser [Concomitant]
     Indication: Pruritus
     Dosage: 1 DOSAGE FORM, BID, APPLIED LITTLE
     Route: 061
     Dates: start: 202302, end: 2023
  12. Proactiv MD Ultra Gentle Cleanser [Concomitant]
     Indication: Pain of skin
  13. Proactiv MD Ultra Gentle Cleanser [Concomitant]
     Indication: Skin discolouration
  14. Proactiv MD Ultra Gentle Cleanser [Concomitant]
     Indication: Skin swelling
  15. Proactiv MD Ultra Gentle Cleanser [Concomitant]
     Indication: Rash papular
  16. KLONOPIN [Concomitant]
     Active Substance: CLONAZEPAM
     Indication: Product used for unknown indication
     Route: 065
  17. ADDERALL [Concomitant]
     Active Substance: AMPHETAMINE ASPARTATE\AMPHETAMINE SULFATE\DEXTROAMPHETAMINE SACCHARATE\DEXTROAMPHETAMINE SULFATE
     Indication: Product used for unknown indication
     Dosage: 30 MILLIGRAM, QD
     Route: 065
  18. ESTROGENS [Concomitant]
     Active Substance: ESTROGENS
     Indication: Product used for unknown indication
     Route: 065

REACTIONS (5)
  - Skin burning sensation [Not Recovered/Not Resolved]
  - Dry skin [Not Recovered/Not Resolved]
  - Product use in unapproved indication [Recovered/Resolved]
  - Inappropriate schedule of product administration [Recovered/Resolved]
  - Underdose [Recovered/Resolved]

NARRATIVE: CASE EVENT DATE: 20230101
